FAERS Safety Report 11712631 (Version 1)
Quarter: 2015Q4

REPORT INFORMATION
  Report Type: Spontaneous
  Country: US (occurrence: US)
  Receive Date: 20151104
  Receipt Date: 20151104
  Transmission Date: 20160304
  Serious: No
  Sender: FDA-Public Use
  Company Number: US-ELI_LILLY_AND_COMPANY-US201012000631

PATIENT
  Age: 68 Year
  Sex: Female

DRUGS (1)
  1. FORTEO [Suspect]
     Active Substance: TERIPARATIDE

REACTIONS (7)
  - Muscle spasms [Unknown]
  - Musculoskeletal pain [Unknown]
  - Arthralgia [Unknown]
  - Sleep disorder due to a general medical condition [Unknown]
  - Contusion [Unknown]
  - Injection site pain [Not Recovered/Not Resolved]
  - Headache [Unknown]
